FAERS Safety Report 7064648-0 (Version None)
Quarter: 2010Q4

REPORT INFORMATION
  Report Type: 
  Country: None (occurrence: None)
  Receive Date: 20101022
  Receipt Date: 20101022
  Transmission Date: 20110411
  Serious: No
  Sender: FDA-Public Use
  Company Number: None

PATIENT
  Age: 35 Year
  Sex: Male
  Weight: 99.7913 kg

DRUGS (1)
  1. TOPIRAMATE [Suspect]

REACTIONS (10)
  - COGNITIVE DISORDER [None]
  - FEELING ABNORMAL [None]
  - FEELING HOT [None]
  - MEMORY IMPAIRMENT [None]
  - PARAESTHESIA [None]
  - PARAESTHESIA ORAL [None]
  - SENSATION OF HEAVINESS [None]
  - THIRST [None]
  - VERTIGO [None]
  - VISUAL IMPAIRMENT [None]
